FAERS Safety Report 7900620-3 (Version None)
Quarter: 2011Q4

REPORT INFORMATION
  Report Type: 
  Country: None (occurrence: None)
  Receive Date: 20111104
  Receipt Date: 20111027
  Transmission Date: 20120403
  Serious: Yes (Death, Life-Threatening, Hospitalization)
  Sender: FDA-Public Use
  Company Number: ABR_00229_2011

PATIENT
  Age: 85 Year
  Sex: Female
  Weight: 42 kg

DRUGS (10)
  1. OMEPRAZOLE [Concomitant]
  2. CITALOPRAM HYDROBROMIDE [Concomitant]
  3. ERYTHROMYCIN [Suspect]
     Indication: LOWER RESPIRATORY TRACT INFECTION
     Dosage: (2000 MG (500 MG, 4 IN 1 D) ORAL)
     Route: 048
     Dates: start: 20110628, end: 20110629
  4. DOXYCYCLINE [Concomitant]
  5. GAVISCON /00237601/ [Concomitant]
  6. CLARITHROMYCIN [Suspect]
     Indication: LOWER RESPIRATORY TRACT INFECTION
     Dosage: 500 MG INTRAVENOUS (NOT OTHERWISE SPECIFIED)
     Route: 042
     Dates: start: 20110629, end: 20110629
  7. ENSURE /06184901/ [Concomitant]
  8. PERINDOPRIL ERBUMINE [Concomitant]
  9. LEVOTHYROXINE SODIUM [Concomitant]
  10. ACETAMINOPHEN [Concomitant]

REACTIONS (1)
  - STEVENS-JOHNSON SYNDROME [None]
